FAERS Safety Report 8862524 (Version 3)
Quarter: 2013Q3

REPORT INFORMATION
  Report Type: Report from Study
  Country: US (occurrence: US)
  Receive Date: 20121026
  Receipt Date: 20130703
  Transmission Date: 20140515
  Serious: Yes (Hospitalization)
  Sender: FDA-Public Use
  Company Number: US-JNJFOC-20121011637

PATIENT
  Age: 5 Year
  Sex: Female
  Weight: 13 kg

DRUGS (2)
  1. REMICADE [Suspect]
     Indication: COLITIS ULCERATIVE
     Route: 042
     Dates: start: 20120127, end: 20120518
  2. PREDNISONE [Concomitant]

REACTIONS (1)
  - Colitis ulcerative [Recovered/Resolved]
